FAERS Safety Report 9789804 (Version 5)
Quarter: 2014Q2

REPORT INFORMATION
  Report Type: Spontaneous
  Country: BE (occurrence: None)
  Receive Date: 20131227
  Receipt Date: 20140423
  Transmission Date: 20141212
  Serious: Yes (Other)
  Sender: FDA-Public Use
  Company Number: ADR-2013-02336

PATIENT
  Age: 10 Year
  Sex: Male

DRUGS (1)
  1. LIORESAL [Suspect]
     Route: 037

REACTIONS (11)
  - Drug withdrawal syndrome [None]
  - Implant site swelling [None]
  - Muscle spasticity [None]
  - Implant site fibrosis [None]
  - Overdose [None]
  - Device connection issue [None]
  - Device dislocation [None]
  - Underdose [None]
  - Pruritus [None]
  - Muscle spasticity [None]
  - Medical device complication [None]
